FAERS Safety Report 9130435 (Version 1)
Quarter: 2013Q1

REPORT INFORMATION
  Report Type: Spontaneous
  Country: ZA (occurrence: ZA)
  Receive Date: 20130301
  Receipt Date: 20130301
  Transmission Date: 20140127
  Serious: Yes (Death, Other)
  Sender: FDA-Public Use
  Company Number: ZA-B.I. PHARMACEUTICALS,INC./RIDGEFIELD-2013-BI-04923GD

PATIENT
  Age: 29 Year
  Sex: Female

DRUGS (3)
  1. VIRAMUNE [Suspect]
     Indication: HIV INFECTION
     Dosage: 200 MG
  2. TENOFOVIR [Suspect]
     Indication: HIV INFECTION
  3. LAMIVUDINE [Suspect]
     Indication: HIV INFECTION

REACTIONS (9)
  - Acute hepatic failure [Fatal]
  - Hepatic encephalopathy [Unknown]
  - Rash generalised [Unknown]
  - Hypotension [Unknown]
  - Jaundice [Unknown]
  - Dyspnoea [Unknown]
  - Oliguria [Unknown]
  - Altered state of consciousness [Unknown]
  - Foetal death [Unknown]
